FAERS Safety Report 5266934-3 (Version None)
Quarter: 2007Q1

REPORT INFORMATION
  Report Type: 
  Country: None (occurrence: None)
  Receive Date: 20070316
  Receipt Date: 20070305
  Transmission Date: 20070707
  Serious: Yes (Hospitalization)
  Sender: FDA-Public Use
  Company Number: PHBS2007JP03552

PATIENT
  Age: 56 Year
  Sex: Male

DRUGS (1)
  1. PARLODEL [Suspect]
     Indication: DEPRESSION
     Route: 048

REACTIONS (14)
  - ANURIA [None]
  - BLOOD CREATINE PHOSPHOKINASE INCREASED [None]
  - CONTINUOUS HAEMODIAFILTRATION [None]
  - FALL [None]
  - GENERALISED OEDEMA [None]
  - INTUBATION [None]
  - LIFE SUPPORT [None]
  - MUSCULOSKELETAL STIFFNESS [None]
  - MYOGLOBIN BLOOD INCREASED [None]
  - NEUROLEPTIC MALIGNANT SYNDROME [None]
  - OLIGURIA [None]
  - PYREXIA [None]
  - SOLILOQUY [None]
  - TREMOR [None]
